FAERS Safety Report 18855047 (Version 1)
Quarter: 2021Q1

REPORT INFORMATION
  Report Type: Spontaneous
  Country: FR (occurrence: FR)
  Receive Date: 20210206
  Receipt Date: 20210206
  Transmission Date: 20210420
  Serious: Yes (Hospitalization)
  Sender: FDA-Public Use
  Company Number: FR-TEVA-2021-FR-1876121

PATIENT
  Age: 42 Year
  Sex: Female
  Weight: 58 kg

DRUGS (3)
  1. SERTRALINE (CHLORHYDRATE DE) [Suspect]
     Active Substance: SERTRALINE HYDROCHLORIDE
     Indication: SUICIDE ATTEMPT
     Dosage: UNIT DOSE: 2800 MILLIGRAM, MAXIMUM SUSPECTED DOSE
     Route: 048
     Dates: start: 20201230, end: 20201230
  2. THERALENE [Suspect]
     Active Substance: TRIMEPRAZINE
     Indication: SUICIDE ATTEMPT
     Dosage: UNIT DOSE: 250 MILLIGRAM, MAXIMUM SUSPECTED DOSE
     Route: 048
     Dates: start: 20201230, end: 20201230
  3. LAMOTRIGINE. [Suspect]
     Active Substance: LAMOTRIGINE
     Indication: SUICIDE ATTEMPT
     Dosage: UNIT DOSE: 6750 MILLIGRAM, MAXIMUM SUSPECTED DOSE
     Route: 048
     Dates: start: 20201230, end: 20201230

REACTIONS (1)
  - Hypercapnic coma [Recovered/Resolved]

NARRATIVE: CASE EVENT DATE: 20201230
